FAERS Safety Report 6573905-3 (Version None)
Quarter: 2010Q1

REPORT INFORMATION
  Report Type: 
  Country: None (occurrence: None)
  Receive Date: 20100208
  Receipt Date: 20100125
  Transmission Date: 20100710
  Serious: Yes (Life-Threatening, Hospitalization)
  Sender: FDA-Public Use
  Company Number: DE-MYLANLABS-2009S1016417

PATIENT
  Age: 76 Year
  Sex: Male
  Weight: 85 kg

DRUGS (9)
  1. IBUPROFEN [Suspect]
     Indication: PAIN
     Route: 048
     Dates: start: 20090311, end: 20090624
  2. ASPIRIN [Interacting]
     Indication: CORONARY ARTERY DISEASE
     Route: 048
     Dates: start: 20090311
  3. XIPAMIDE [Interacting]
     Indication: HYPERTENSION
     Route: 048
     Dates: start: 20090311
  4. ACTRAPID [Concomitant]
     Indication: TYPE 2 DIABETES MELLITUS
     Dosage: DOSIS/APPLIKATION: 40/36/30
     Route: 058
     Dates: start: 20090311
  5. BISOPROLOL [Concomitant]
     Indication: HYPERTENSION
     Route: 048
     Dates: start: 20090311, end: 20090624
  6. DIGITOXIN [Concomitant]
     Indication: TACHYARRHYTHMIA
     Route: 048
     Dates: start: 20090311, end: 20090624
  7. METFORMIN HCL [Concomitant]
     Indication: TYPE 2 DIABETES MELLITUS
     Route: 048
     Dates: start: 20090311, end: 20090624
  8. OMEPRAZOLE [Concomitant]
     Indication: PROPHYLAXIS AGAINST GASTROINTESTINAL ULCER
     Route: 048
     Dates: start: 20090311
  9. PROTAPHANE MC [Concomitant]
     Indication: TYPE 2 DIABETES MELLITUS
     Route: 058
     Dates: start: 20090311

REACTIONS (2)
  - DRUG INTERACTION [None]
  - RENAL FAILURE ACUTE [None]
